FAERS Safety Report 5768379-6 (Version None)
Quarter: 2008Q2

REPORT INFORMATION
  Report Type: 
  Country: None (occurrence: None)
  Receive Date: 20080612
  Receipt Date: 20080303
  Transmission Date: 20081010
  Serious: Yes (Hospitalization)
  Sender: FDA-Public Use
  Company Number: US-ABBOTT-08P-163-0440578-00

PATIENT
  Sex: Female
  Weight: 59.02 kg

DRUGS (3)
  1. HUMIRA [Suspect]
     Indication: CROHN'S DISEASE
     Route: 058
     Dates: start: 20070423, end: 20080205
  2. DICYCLOMINE HCL [Concomitant]
     Indication: CROHN'S DISEASE
  3. SHOT [Concomitant]
     Indication: SEASONAL ALLERGY
     Route: 050

REACTIONS (5)
  - ABSCESS [None]
  - DEHYDRATION [None]
  - DIARRHOEA [None]
  - GASTROENTERITIS VIRAL [None]
  - VOMITING [None]
